FAERS Safety Report 5387770-3 (Version None)
Quarter: 2007Q3

REPORT INFORMATION
  Report Type: 
  Country: None (occurrence: None)
  Receive Date: 20070712
  Receipt Date: 20070712
  Transmission Date: 20080115
  Serious: Yes (Hospitalization)
  Sender: FDA-Public Use
  Company Number: None

PATIENT
  Age: 81 Year
  Sex: Male
  Weight: 97.0698 kg

DRUGS (2)
  1. CYCLOPHOSPHAMIDE [Suspect]
     Indication: PROSTATE CANCER METASTATIC
     Dosage: 795MG X 3 DAYS
     Dates: start: 20061227, end: 20061229
  2. ALLOGENIC PROSTATE GVAX VACCINE [Suspect]
     Indication: PROSTATE CANCER METASTATIC
     Dosage: 4.6 ML X1 / 3.6 ML Q 2W
     Dates: start: 20070103, end: 20070618

REACTIONS (1)
  - CONSTIPATION [None]
